FAERS Safety Report 8303514-7 (Version None)
Quarter: 2012Q2

REPORT INFORMATION
  Report Type: 
  Country: None (occurrence: None)
  Receive Date: 20120418
  Receipt Date: 20110513
  Transmission Date: 20120825
  Serious: No
  Sender: FDA-Public Use
  Company Number: AECAN201100126

PATIENT
  Age: 66 Year
  Sex: Male
  Weight: 89.2 kg

DRUGS (1)
  1. PROLASTIN-C [Suspect]
     Indication: ALPHA-1 ANTI-TRYPSIN DEFICIENCY
     Dosage: 6000 MG;QW;IV
     Route: 042
     Dates: start: 20100501

REACTIONS (3)
  - OVERDOSE [None]
  - NO ADVERSE EVENT [None]
  - MEDICATION ERROR [None]
